FAERS Safety Report 5925729-5 (Version None)
Quarter: 2008Q4

REPORT INFORMATION
  Report Type: 
  Country: None (occurrence: None)
  Receive Date: 20081021
  Receipt Date: 20081016
  Transmission Date: 20090506
  Serious: No
  Sender: FDA-Public Use
  Company Number: US-AVENTIS-200816979US

PATIENT
  Sex: Female

DRUGS (3)
  1. ARAVA [Suspect]
     Indication: RHEUMATOID ARTHRITIS
     Dosage: DOSE: UNK
     Dates: end: 20080501
  2. NAPROXEN [Concomitant]
     Dosage: DOSE: UNK
     Dates: end: 20080501
  3. PLAQUENIL                          /00072601/ [Concomitant]
     Dosage: DOSE: UNK
     Dates: end: 20080501

REACTIONS (2)
  - DRUG EXPOSURE DURING PREGNANCY [None]
  - PREGNANCY [None]
